FAERS Safety Report 6016584-6 (Version None)
Quarter: 2008Q4

REPORT INFORMATION
  Report Type: 
  Country: None (occurrence: None)
  Receive Date: 20081222
  Receipt Date: 20081210
  Transmission Date: 20090506
  Serious: Yes (Other)
  Sender: FDA-Public Use
  Company Number: PHHY2008JP31820

PATIENT
  Age: 43 Year
  Sex: Male

DRUGS (5)
  1. CYCLOSPORINE [Suspect]
     Indication: STEM CELL TRANSPLANT
     Dosage: UNK
  2. FLUDARABINE PHOSPHATE [Suspect]
  3. MELPHALAN [Suspect]
  4. CYTARABINE [Suspect]
  5. METHOTREXATE [Suspect]

REACTIONS (3)
  - ACUTE GRAFT VERSUS HOST DISEASE IN LIVER [None]
  - APLASIA PURE RED CELL [None]
  - PSEUDOMEMBRANOUS COLITIS [None]
